FAERS Safety Report 17506415 (Version 1)
Quarter: 2020Q1

REPORT INFORMATION
  Report Type: Spontaneous
  Country: US (occurrence: US)
  Receive Date: 20200305
  Receipt Date: 20200305
  Transmission Date: 20200409
  Serious: No
  Sender: FDA-Public Use
  Company Number: US-ROCHE-2427053

PATIENT
  Sex: Male
  Weight: 81.72 kg

DRUGS (4)
  1. TESTOSTERONE. [Concomitant]
     Active Substance: TESTOSTERONE
     Route: 065
     Dates: start: 2017
  2. SYMBICORT [Concomitant]
     Active Substance: BUDESONIDE\FORMOTEROL FUMARATE DIHYDRATE
     Indication: ASTHMA
     Route: 055
     Dates: start: 2016
  3. XOLAIR [Suspect]
     Active Substance: OMALIZUMAB
     Indication: ASTHMA
     Route: 065
     Dates: start: 201701
  4. PREDNISONE. [Concomitant]
     Active Substance: PREDNISONE
     Indication: RASH
     Route: 065
     Dates: start: 201909, end: 20190922

REACTIONS (3)
  - Acarodermatitis [Unknown]
  - Rash [Not Recovered/Not Resolved]
  - Eczema [Unknown]

NARRATIVE: CASE EVENT DATE: 2017
